FAERS Safety Report 20231499 (Version 1)
Quarter: 2021Q4

REPORT INFORMATION
  Report Type: Spontaneous
  Country: TH (occurrence: TH)
  Receive Date: 20211227
  Receipt Date: 20211227
  Transmission Date: 20220303
  Serious: Yes (Other)
  Sender: FDA-Public Use
  Company Number: TH-NOVARTISPH-NVSC2021TH286421

PATIENT
  Age: 58 Year
  Sex: Female

DRUGS (3)
  1. KISQALI [Suspect]
     Active Substance: RIBOCICLIB
     Indication: Breast cancer
     Dosage: 600 MG, QD (3 WEEKS ON / 1 WEEK OFF)
     Route: 065
     Dates: start: 20201022
  2. KISQALI [Suspect]
     Active Substance: RIBOCICLIB
     Dosage: 400 MG, QD (3 WEEKS ON/ 1 WEEK OFF)
     Route: 065
  3. LETROZOLE [Suspect]
     Active Substance: LETROZOLE
     Indication: Breast cancer
     Dosage: 2.5 MG, QD
     Route: 065

REACTIONS (22)
  - Chronic kidney disease [Unknown]
  - Neutropenia [Unknown]
  - White blood cell count decreased [Unknown]
  - Red blood cell count decreased [Unknown]
  - Haemoglobin decreased [Unknown]
  - Haematocrit decreased [Unknown]
  - Red cell distribution width increased [Unknown]
  - Platelet count decreased [Unknown]
  - Blood smear test abnormal [Unknown]
  - Neutrophil count decreased [Unknown]
  - Monocyte count increased [Unknown]
  - Eosinophil count decreased [Unknown]
  - Eosinophil count increased [Unknown]
  - Lymphocyte count decreased [Unknown]
  - Basophil count decreased [Unknown]
  - Polychromasia [Unknown]
  - Mean cell volume [Unknown]
  - Mean cell haemoglobin increased [Unknown]
  - Anisocytosis [Unknown]
  - Red blood cell macrocytes present [Unknown]
  - Red blood cell target cells present [Unknown]
  - Mean cell haemoglobin concentration decreased [Unknown]
